FAERS Safety Report 8050580-2 (Version None)
Quarter: 2012Q1

REPORT INFORMATION
  Report Type: 
  Country: None (occurrence: None)
  Receive Date: 20120117
  Receipt Date: 20120105
  Transmission Date: 20120608
  Serious: Yes (Hospitalization, Disabling)
  Sender: FDA-Public Use
  Company Number: BR-ASTRAZENECA-2011SE36391

PATIENT
  Age: 87 Year
  Sex: Female
  Weight: 90 kg

DRUGS (6)
  1. METOPROLOL SUCCINATE [Suspect]
     Indication: HYPERTENSION
     Route: 048
     Dates: end: 20080101
  2. CLOPIDOGREL [Concomitant]
     Indication: BLOOD TRIGLYCERIDES INCREASED
     Route: 048
     Dates: start: 20080101
  3. CRESTOR [Suspect]
     Indication: HYPERCHOLESTEROLAEMIA
     Route: 048
  4. SOMALGIN CARDIO [Concomitant]
     Route: 048
     Dates: start: 20080101
  5. AMIODARONE HYDROCHLORIDE [Concomitant]
     Indication: ARRHYTHMIA
     Route: 048
     Dates: start: 20080101
  6. METOPROLOL SUCCINATE [Suspect]
     Route: 048
     Dates: start: 20080101

REACTIONS (5)
  - SPEECH DISORDER [None]
  - WEIGHT DECREASED [None]
  - WALKING DISABILITY [None]
  - CEREBROVASCULAR ACCIDENT [None]
  - SLUGGISHNESS [None]
